FAERS Safety Report 5071764-1 (Version None)
Quarter: 2006Q3

REPORT INFORMATION
  Report Type: 
  Country: None (occurrence: None)
  Receive Date: 20060801
  Receipt Date: 20060719
  Transmission Date: 20061208
  Serious: Yes (Other)
  Sender: FDA-Public Use
  Company Number: JP200606004435

PATIENT
  Age: 24 Year
  Sex: Female

DRUGS (2)
  1. ZYPREXA [Suspect]
     Indication: SCHIZOPHRENIA
     Dosage: DAILY (1/D), ORAL
     Route: 048
     Dates: start: 20060610, end: 20060713
  2. DEPAKENE-R/JPN/(VALPROATE SODIUM) [Concomitant]

REACTIONS (1)
  - GRANULOCYTE COUNT DECREASED [None]
